FAERS Safety Report 17135118 (Version 1)
Quarter: 2019Q4

REPORT INFORMATION
  Report Type: Spontaneous
  Country: US (occurrence: US)
  Receive Date: 20191210
  Receipt Date: 20191210
  Transmission Date: 20200122
  Serious: No
  Sender: FDA-Public Use
  Company Number: US-PFIZER INC-2019527591

PATIENT
  Age: 33 Year
  Sex: Female
  Weight: 85.35 kg

DRUGS (1)
  1. HYDROXYZINE PAMOATE. [Suspect]
     Active Substance: HYDROXYZINE PAMOATE
     Dosage: 25 MG, UNK
     Dates: start: 20191121

REACTIONS (1)
  - Drug ineffective [Unknown]
